FAERS Safety Report 9496473 (Version 1)
Quarter: 2013Q3

REPORT INFORMATION
  Report Type: Spontaneous
  Country: CN (occurrence: CN)
  Receive Date: 20130904
  Receipt Date: 20130904
  Transmission Date: 20140515
  Serious: Yes (Hospitalization)
  Sender: FDA-Public Use
  Company Number: PHHY2013CN095520

PATIENT
  Age: 20 Year
  Sex: Male

DRUGS (1)
  1. CARBAMAZEPINE [Suspect]
     Indication: PAIN IN EXTREMITY
     Dosage: 200 MG PER DAY
     Route: 048

REACTIONS (18)
  - Upper gastrointestinal haemorrhage [Unknown]
  - Loss of consciousness [Recovered/Resolved]
  - Lacrimation increased [Recovered/Resolved]
  - Blood pressure increased [Unknown]
  - Abdominal pain [Unknown]
  - Haematemesis [Recovered/Resolved]
  - Haematochezia [Unknown]
  - Drug eruption [Unknown]
  - Rash maculo-papular [Unknown]
  - Pruritus [Unknown]
  - Blister [Unknown]
  - Eyelid erosion [Unknown]
  - Oral mucosa erosion [Unknown]
  - Eyelid oedema [Recovered/Resolved]
  - Pyrexia [Recovered/Resolved]
  - Rash pustular [Unknown]
  - Trismus [Unknown]
  - Pain [Unknown]
